FAERS Safety Report 11120151 (Version 1)
Quarter: 2015Q2

REPORT INFORMATION
  Report Type: Spontaneous
  Country: US (occurrence: US)
  Receive Date: 20150518
  Receipt Date: 20150518
  Transmission Date: 20150821
  Serious: No
  Sender: FDA-Public Use
  Company Number: US-BAUSCH-BL-2014-010124

PATIENT
  Age: 51 Year
  Sex: Female
  Weight: 56.75 kg

DRUGS (2)
  1. SYNTHROID [Concomitant]
     Active Substance: LEVOTHYROXINE SODIUM
     Indication: PRODUCT USED FOR UNKNOWN INDICATION
  2. ELIDEL [Suspect]
     Active Substance: PIMECROLIMUS
     Indication: ERYTHEMA
     Route: 061
     Dates: start: 20141125, end: 20141126

REACTIONS (5)
  - Lacrimation increased [Recovered/Resolved]
  - Asthenopia [Recovered/Resolved]
  - Swelling face [Recovered/Resolved]
  - Eye irritation [Recovered/Resolved]
  - Ocular hyperaemia [Recovered/Resolved]

NARRATIVE: CASE EVENT DATE: 20141125
